FAERS Safety Report 5279762-X (Version None)
Quarter: 2007Q1

REPORT INFORMATION
  Report Type: 
  Country: None (occurrence: None)
  Receive Date: 20061208
  Receipt Date: 20050502
  Transmission Date: 20070707
  Serious: Yes (Disabling)
  Sender: FDA-Public Use
  Company Number: 2005UW00318

PATIENT
  Age: 46 Year
  Sex: Female
  Weight: 72.1219 kg

DRUGS (9)
  1. CRESTOR [Suspect]
     Indication: BLOOD CHOLESTEROL INCREASED
     Dosage: 10 MG DAILY PO
     Route: 048
     Dates: start: 20040521, end: 20040621
  2. ASPIRIN [Suspect]
     Dates: start: 20040521, end: 20040621
  3. XANAX [Concomitant]
  4. ZELNORM [Concomitant]
  5. VITAMINS NOS [Concomitant]
  6. MINERALS NOS [Concomitant]
  7. CALCIUM [Concomitant]
  8. FISH OIL [Concomitant]
  9. FOLIC ACID [Concomitant]

REACTIONS (2)
  - ABDOMINAL PAIN UPPER [None]
  - OEDEMA PERIPHERAL [None]
